FAERS Safety Report 8417428-5 (Version None)
Quarter: 2012Q2

REPORT INFORMATION
  Report Type: 
  Country: None (occurrence: None)
  Receive Date: 20120606
  Receipt Date: 20120523
  Transmission Date: 20120825
  Serious: Yes (Death, Life-Threatening, Hospitalization, Disabling, Other)
  Sender: FDA-Public Use
  Company Number: US-MYLANLABS-2009AC000033

PATIENT
  Age: 53 Year
  Sex: Male
  Weight: 72.12 kg

DRUGS (34)
  1. KLOR-CON [Concomitant]
  2. COLCHICINE [Concomitant]
     Route: 048
  3. PACERONE [Concomitant]
  4. COUMADIN [Concomitant]
  5. LANSOPRAZOLE [Concomitant]
  6. MAGNESIUM OXIDE [Concomitant]
  7. LEVOPHED [Concomitant]
  8. ASPIRIN [Concomitant]
     Route: 048
  9. NITROGLYCERIN [Concomitant]
     Route: 060
  10. DIGOXIN [Suspect]
     Indication: HEART RATE IRREGULAR
     Route: 048
     Dates: start: 20040608, end: 20070818
  11. PLAVIX [Concomitant]
  12. PROTONIX [Concomitant]
  13. SPIRONOLACTONE [Concomitant]
  14. COREG [Concomitant]
     Route: 048
  15. CEPHALEXIN [Concomitant]
  16. QUININE SULFATE [Concomitant]
  17. METHYLPREDNISOLONE [Concomitant]
  18. LISINOPRIL [Concomitant]
  19. ATORVASTATIN CALCIUM [Concomitant]
  20. PROMETHAZINE [Concomitant]
  21. NITROGLYCERIN [Concomitant]
     Dosage: MG/HR
     Route: 062
  22. FUROSEMIDE [Concomitant]
  23. AMBIEN [Concomitant]
  24. LASIX [Concomitant]
     Route: 048
  25. DOPAMINE HCL [Concomitant]
  26. CARVEDILOL [Concomitant]
  27. ALLOPURINOL [Concomitant]
  28. ERYTHROMYCIN [Concomitant]
  29. PREDNISONE TAB [Concomitant]
  30. ALDACTONE [Concomitant]
     Route: 048
  31. AMIODARONE HCL [Concomitant]
  32. CEFTIN [Concomitant]
  33. HYDROCODONE BITARTRATE [Concomitant]
  34. ZITHROMAX [Concomitant]

REACTIONS (110)
  - DEHYDRATION [None]
  - DYSPNOEA [None]
  - HEPATIC FAILURE [None]
  - PLEURAL EFFUSION [None]
  - PULMONARY HYPERTENSION [None]
  - SEPSIS [None]
  - FLANK PAIN [None]
  - ORTHOPNOEA [None]
  - PALLOR [None]
  - PYREXIA [None]
  - SYNOVIAL CYST [None]
  - TOBACCO ABUSE [None]
  - ILL-DEFINED DISORDER [None]
  - PULMONARY OEDEMA [None]
  - CHEST PAIN [None]
  - ENCEPHALOPATHY [None]
  - HYPOXIA [None]
  - HEPATOJUGULAR REFLUX [None]
  - HYPERKALAEMIA [None]
  - INCOHERENT [None]
  - NUCLEAR MAGNETIC RESONANCE IMAGING ABNORMAL [None]
  - VIITH NERVE PARALYSIS [None]
  - PAIN [None]
  - TOXICITY TO VARIOUS AGENTS [None]
  - RESPIRATORY FAILURE [None]
  - ANAEMIA [None]
  - ASCITES [None]
  - CHOLECYSTITIS [None]
  - METABOLIC ACIDOSIS [None]
  - CATHETERISATION CARDIAC ABNORMAL [None]
  - COMPUTERISED TOMOGRAM ABNORMAL [None]
  - DYSPNOEA PAROXYSMAL NOCTURNAL [None]
  - FATIGUE [None]
  - HYPERGLYCAEMIA [None]
  - OLIGURIA [None]
  - PACKED RED BLOOD CELL TRANSFUSION [None]
  - PLATELET TRANSFUSION [None]
  - HYPERBILIRUBINAEMIA [None]
  - NAUSEA [None]
  - ABDOMINAL DISTENSION [None]
  - ACUTE HEPATIC FAILURE [None]
  - HEMIPLEGIA [None]
  - HEPATORENAL SYNDROME [None]
  - LEFT VENTRICULAR HYPERTROPHY [None]
  - BEDRIDDEN [None]
  - CARDIAC STRESS TEST ABNORMAL [None]
  - HEPATOMEGALY [None]
  - PROTEINURIA [None]
  - RENAL CYST [None]
  - ECONOMIC PROBLEM [None]
  - ATRIAL FIBRILLATION [None]
  - CARDIAC FAILURE CONGESTIVE [None]
  - CARDIAC VALVE DISEASE [None]
  - MUSCLE SPASMS [None]
  - CARDIOGENIC SHOCK [None]
  - MYOCARDIAL INFARCTION [None]
  - BREATH SOUNDS ABNORMAL [None]
  - CARDIAC MURMUR [None]
  - CORONARY ANGIOPLASTY [None]
  - ELECTROCARDIOGRAM ABNORMAL [None]
  - ENTEROCOCCAL INFECTION [None]
  - HEPATOBILIARY SCAN ABNORMAL [None]
  - HYPOTENSION [None]
  - MUSCLE ATROPHY [None]
  - VENTRICULAR EXTRASYSTOLES [None]
  - ANTICOAGULANT THERAPY [None]
  - ASTHENIA [None]
  - CONGESTIVE CARDIOMYOPATHY [None]
  - ILEUS PARALYTIC [None]
  - RENAL TUBULAR NECROSIS [None]
  - THROMBOCYTOPENIA [None]
  - ABDOMINAL CAVITY DRAINAGE [None]
  - ABDOMINAL PAIN UPPER [None]
  - ARTHRALGIA [None]
  - CHEST X-RAY ABNORMAL [None]
  - GOUTY TOPHUS [None]
  - JUGULAR VEIN DISTENSION [None]
  - LABORATORY TEST ABNORMAL [None]
  - MENTAL STATUS CHANGES [None]
  - OXYGEN SATURATION DECREASED [None]
  - TACHYCARDIA [None]
  - INJURY [None]
  - ILEUS [None]
  - VOMITING [None]
  - ATELECTASIS [None]
  - CHILLS [None]
  - CORONARY ARTERIAL STENT INSERTION [None]
  - DYSARTHRIA [None]
  - EPISTAXIS [None]
  - GOUTY ARTHRITIS [None]
  - GRAVITATIONAL OEDEMA [None]
  - LEUKOCYTOSIS [None]
  - LUNG INFILTRATION [None]
  - MYOSITIS OSSIFICANS [None]
  - PNEUMONIA [None]
  - TREATMENT NONCOMPLIANCE [None]
  - EMOTIONAL DISTRESS [None]
  - DEATH [None]
  - DIARRHOEA [None]
  - CEREBROVASCULAR ACCIDENT [None]
  - THROMBOSIS [None]
  - FLATULENCE [None]
  - HEMIPARESIS [None]
  - BACK PAIN [None]
  - ECHOCARDIOGRAM ABNORMAL [None]
  - HEART RATE IRREGULAR [None]
  - HYPERTENSION [None]
  - HYPOKALAEMIA [None]
  - INFLAMMATION [None]
  - JOINT EFFUSION [None]
